FAERS Safety Report 6824687-9 (Version None)
Quarter: 2010Q3

REPORT INFORMATION
  Report Type: 
  Country: None (occurrence: None)
  Receive Date: 20100708
  Receipt Date: 20061112
  Transmission Date: 20110219
  Serious: No
  Sender: FDA-Public Use
  Company Number: US-PFIZER INC-2006140273

PATIENT
  Age: 53 Year
  Sex: Female
  Weight: 58.51 kg

DRUGS (2)
  1. CHANTIX [Suspect]
     Dates: start: 20061101
  2. ZOLOFT [Concomitant]

REACTIONS (2)
  - NAUSEA [None]
  - VOMITING [None]
